FAERS Safety Report 7316214-7 (Version None)
Quarter: 2011Q1

REPORT INFORMATION
  Report Type: 
  Country: None (occurrence: None)
  Receive Date: 20110225
  Receipt Date: 20110221
  Transmission Date: 20110831
  Serious: Yes (Other)
  Sender: FDA-Public Use
  Company Number: US-PFIZER INC-2011037970

PATIENT
  Sex: Female
  Weight: 77.098 kg

DRUGS (3)
  1. EFFEXOR XR [Suspect]
     Indication: DEPRESSION
     Dosage: 75 MG, 1X/DAY
     Route: 048
     Dates: start: 19990101
  2. ASPIRIN, BUTALBITAL, CAFFEINE AND CODEINE [Concomitant]
     Indication: MIGRAINE
     Dosage: UNK
     Route: 048
  3. PREMARIN [Suspect]
     Indication: HYSTERECTOMY
     Dosage: 1.25 MG, UNK
     Route: 048
     Dates: start: 19830101

REACTIONS (1)
  - HYPOTHYROIDISM [None]
